FAERS Safety Report 13184712 (Version 1)
Quarter: 2017Q1

REPORT INFORMATION
  Report Type: Spontaneous
  Country: BE (occurrence: BE)
  Receive Date: 20170203
  Receipt Date: 20170203
  Transmission Date: 20170428
  Serious: Yes (Hospitalization)
  Sender: FDA-Public Use
  Company Number: BE-ASTRAZENECA-2016SF28149

PATIENT
  Age: 37 Year
  Sex: Female

DRUGS (7)
  1. LEVOMEPROMAZINE [Concomitant]
     Active Substance: LEVOMEPROMAZINE
     Route: 065
  2. ANTI-CONCEPTIVE [Concomitant]
     Route: 048
  3. QUETIAPINE. [Suspect]
     Active Substance: QUETIAPINE
     Indication: SCHIZOPHRENIA
     Route: 048
     Dates: start: 201108
  4. LORAZEPAM. [Concomitant]
     Active Substance: LORAZEPAM
     Route: 065
  5. QUETIAPINE. [Suspect]
     Active Substance: QUETIAPINE
     Indication: PSYCHOTIC DISORDER
     Route: 048
     Dates: start: 201108
  6. PRAZEPAM [Concomitant]
     Active Substance: PRAZEPAM
     Route: 065
  7. BROMPERIDOL [Concomitant]
     Active Substance: BROMPERIDOL
     Route: 065

REACTIONS (3)
  - Dry mouth [Recovered/Resolved]
  - Incorrect dose administered [Recovered/Resolved with Sequelae]
  - Congestive cardiomyopathy [Recovered/Resolved with Sequelae]

NARRATIVE: CASE EVENT DATE: 201108
